FAERS Safety Report 21018841 (Version 1)
Quarter: 2022Q2

REPORT INFORMATION
  Report Type: Spontaneous
  Country: US (occurrence: None)
  Receive Date: 20220628
  Receipt Date: 20220628
  Transmission Date: 20220721
  Serious: Yes (Other)
  Sender: FDA-Public Use
  Company Number: None

PATIENT
  Age: 70 Year
  Sex: Male
  Weight: 79.9 kg

DRUGS (3)
  1. PAXLOVID [Suspect]
     Active Substance: NIRMATRELVIR\RITONAVIR
     Indication: COVID-19
     Dosage: FREQUENCY : TWICE A DAY;?
     Route: 048
     Dates: start: 20220618, end: 20220622
  2. METHOTREXATE [Concomitant]
     Active Substance: METHOTREXATE
  3. REMICADE [Concomitant]
     Active Substance: INFLIXIMAB

REACTIONS (4)
  - COVID-19 [None]
  - Malaise [None]
  - Fatigue [None]
  - Sinus congestion [None]

NARRATIVE: CASE EVENT DATE: 20220626
